FAERS Safety Report 7494577-X (Version None)
Quarter: 2011Q2

REPORT INFORMATION
  Report Type: 
  Country: None (occurrence: None)
  Receive Date: 20110520
  Receipt Date: 20110512
  Transmission Date: 20111010
  Serious: Yes (Hospitalization)
  Sender: FDA-Public Use
  Company Number: PHHY2011BR40688

PATIENT
  Sex: Female

DRUGS (4)
  1. FORMOTEROL FUMARATE [Suspect]
     Indication: ASTHMA
     Dosage: 1 INHALATION EVERY 12 HOURS
  2. BEROTEC [Concomitant]
     Indication: ASTHMA
     Dosage: 5 DROPS
  3. ENALAPRIL MALEATE [Concomitant]
     Indication: BLOOD PRESSURE INCREASED
     Dosage: 1 DF, EVERY 12 HOURS
  4. ATROVENT [Concomitant]
     Indication: ASTHMA
     Dosage: 30 DROPS

REACTIONS (5)
  - DYSPNOEA [None]
  - MALAISE [None]
  - CARDIO-RESPIRATORY ARREST [None]
  - ASTHMA [None]
  - ARRHYTHMIA [None]
